FAERS Safety Report 8968287 (Version 1)
Quarter: 2012Q4

REPORT INFORMATION
  Report Type: Spontaneous
  Country: US (occurrence: None)
  Receive Date: 20121213
  Receipt Date: 20121213
  Transmission Date: 20130627
  Serious: No
  Sender: FDA-Public Use
  Company Number: None

PATIENT
  Age: 62 Year
  Sex: Male
  Weight: 62 kg

DRUGS (1)
  1. MORPHINE [Suspect]
     Dosage: 15 MG UD PO
     Route: 048
     Dates: start: 20120707, end: 20120726

REACTIONS (1)
  - Memory impairment [None]
